FAERS Safety Report 19746083 (Version 1)
Quarter: 2021Q3

REPORT INFORMATION
  Report Type: Other
  Country: CA (occurrence: CA)
  Receive Date: 20210825
  Receipt Date: 20210825
  Transmission Date: 20211014
  Serious: Yes (Other)
  Sender: FDA-Public Use
  Company Number: CA-ROCHE-2894550

PATIENT
  Age: 61 Year
  Sex: Female

DRUGS (18)
  1. CYMBALTA [Concomitant]
     Active Substance: DULOXETINE HYDROCHLORIDE
  2. FOLIC ACID. [Concomitant]
     Active Substance: FOLIC ACID
  3. OMEGA 3 [Concomitant]
     Active Substance: OMEGA-3 FATTY ACIDS
  4. ZOPICLONE [Concomitant]
     Active Substance: ZOPICLONE
  5. CALCIUM [Concomitant]
     Active Substance: CALCIUM
  6. VITAMIN C [Concomitant]
     Active Substance: ASCORBIC ACID
  7. ACTEMRA [Suspect]
     Active Substance: TOCILIZUMAB
     Route: 042
     Dates: start: 20181120, end: 20200120
  8. CELEBREX [Concomitant]
     Active Substance: CELECOXIB
  9. PALIFERMIN [Concomitant]
     Active Substance: PALIFERMIN
  10. ACTEMRA [Suspect]
     Active Substance: TOCILIZUMAB
     Indication: RHEUMATOID ARTHRITIS
     Route: 042
     Dates: start: 20130213, end: 20181023
  11. TURMERIC [Concomitant]
     Active Substance: HERBALS\TURMERIC
  12. FISH OIL [Concomitant]
     Active Substance: FISH OIL
  13. METHOTREXATE. [Concomitant]
     Active Substance: METHOTREXATE
  14. FEVERFEW [TANACETUM PARTHENIUM] [Concomitant]
     Active Substance: FEVERFEW\TANACETUM PARTHENIUM
     Indication: HEADACHE
  15. RABEPRAZOLE [Concomitant]
     Active Substance: RABEPRAZOLE
  16. ACTEMRA [Suspect]
     Active Substance: TOCILIZUMAB
     Route: 042
     Dates: start: 20200217
  17. FEVERFEW [TANACETUM PARTHENIUM] [Concomitant]
     Active Substance: FEVERFEW\TANACETUM PARTHENIUM
     Indication: MIGRAINE
  18. MAGNESIUM [Concomitant]
     Active Substance: MAGNESIUM

REACTIONS (1)
  - Postoperative wound infection [Unknown]

NARRATIVE: CASE EVENT DATE: 202108
